FAERS Safety Report 10932974 (Version 1)
Quarter: 2015Q1

REPORT INFORMATION
  Report Type: Spontaneous
  Country: JP (occurrence: JP)
  Receive Date: 20150320
  Receipt Date: 20150320
  Transmission Date: 20150721
  Serious: Yes (Hospitalization)
  Sender: FDA-Public Use
  Company Number: JP-ORION CORPORATION ORION PHARMA-ENT 2015-0059

PATIENT
  Sex: Female

DRUGS (3)
  1. MADOPAR [Concomitant]
     Active Substance: BENSERAZIDE HYDROCHLORIDE\LEVODOPA
     Route: 065
  2. COMTAN [Suspect]
     Active Substance: ENTACAPONE
     Indication: PARKINSON^S DISEASE
     Route: 048
  3. COMTAN [Suspect]
     Active Substance: ENTACAPONE
     Dosage: DOSE REDUCED
     Route: 048

REACTIONS (4)
  - Dyskinesia [Unknown]
  - Constipation [Unknown]
  - Neuroleptic malignant syndrome [Unknown]
  - Pyrexia [Unknown]
